FAERS Safety Report 9661812 (Version 2)
Quarter: 2013Q4

REPORT INFORMATION
  Report Type: Spontaneous
  Country: US (occurrence: US)
  Receive Date: 20131031
  Receipt Date: 20131031
  Transmission Date: 20140711
  Serious: No
  Sender: FDA-Public Use
  Company Number: US-PURDUE-USA-2010-0047778

PATIENT
  Sex: Female

DRUGS (2)
  1. OXYCONTIN (NDA 22-272) [Suspect]
     Indication: CANCER PAIN
     Dosage: 80 MG, 5/DAY
     Dates: start: 201009
  2. OXYCONTIN (NDA 22-272) [Suspect]
     Dosage: 20 MG, TID

REACTIONS (7)
  - Medication residue present [Unknown]
  - Pain [Unknown]
  - Vomiting [Unknown]
  - Malaise [Unknown]
  - Drug effect delayed [Unknown]
  - Drug ineffective [Unknown]
  - Drug effect incomplete [Unknown]
